FAERS Safety Report 7438869-9 (Version None)
Quarter: 2011Q2

REPORT INFORMATION
  Report Type: 
  Country: None (occurrence: None)
  Receive Date: 20110426
  Receipt Date: 20110415
  Transmission Date: 20111010
  Serious: Yes (Hospitalization)
  Sender: FDA-Public Use
  Company Number: JP-ELI_LILLY_AND_COMPANY-JP201103008645

PATIENT
  Age: 75 Year
  Sex: Male

DRUGS (2)
  1. CALCIUM [Concomitant]
     Route: 048
  2. FORTEO [Suspect]
     Dosage: UNK
     Route: 058
     Dates: start: 20110306

REACTIONS (2)
  - ARTHRALGIA [None]
  - FRACTURE [None]
